FAERS Safety Report 7135788-2 (Version None)
Quarter: 2010Q4

REPORT INFORMATION
  Report Type: 
  Country: None (occurrence: None)
  Receive Date: 20101203
  Receipt Date: 20101124
  Transmission Date: 20110411
  Serious: Yes (Other)
  Sender: FDA-Public Use
  Company Number: US-PFIZER INC-2010157099

PATIENT
  Sex: Female

DRUGS (2)
  1. EFFEXOR [Suspect]
     Dosage: 37.5 PILLS EVERY 36 HOURS
  2. EFFEXOR XR [Suspect]
     Dosage: UNK

REACTIONS (5)
  - DRUG DEPENDENCE [None]
  - MALAISE [None]
  - MOTION SICKNESS [None]
  - NAUSEA [None]
  - VOMITING [None]
